FAERS Safety Report 25578524 (Version 1)
Quarter: 2025Q3

REPORT INFORMATION
  Report Type: Spontaneous
  Country: US (occurrence: None)
  Receive Date: 20250717
  Receipt Date: 20250717
  Transmission Date: 20251021
  Serious: Yes (Other)
  Sender: FDA-CTU
  Company Number: None

PATIENT
  Age: 73 Year
  Sex: Male

DRUGS (4)
  1. SOTALOL [Suspect]
     Active Substance: SOTALOL
  2. ENTYVIO [Suspect]
     Active Substance: VEDOLIZUMAB
  3. DILTIAZEM [Suspect]
     Active Substance: DILTIAZEM
  4. BUMEX [Suspect]
     Active Substance: BUMETANIDE

REACTIONS (11)
  - Unresponsive to stimuli [None]
  - Cardiac arrest [None]
  - Blood magnesium decreased [None]
  - Chronotropic incompetence [None]
  - Adverse drug reaction [None]
  - Contraindicated product administered [None]
  - Blood creatinine increased [None]
  - Hypertension [None]
  - Electrocardiogram QT prolonged [None]
  - Creatinine renal clearance decreased [None]
  - Drug-disease interaction [None]

NARRATIVE: CASE EVENT DATE: 20250707
